FAERS Safety Report 16117219 (Version 1)
Quarter: 2019Q1

REPORT INFORMATION
  Report Type: Spontaneous
  Country: US (occurrence: US)
  Receive Date: 20190221
  Receipt Date: 20190221
  Transmission Date: 20190418
  Serious: No
  Sender: FDA-Public Use
  Company Number: None

PATIENT
  Age: 62 Year
  Sex: Male

DRUGS (1)
  1. COSENTYX [Suspect]
     Active Substance: SECUKINUMAB
     Indication: PROSTATIC SPECIFIC ANTIGEN
     Dates: start: 201811

REACTIONS (3)
  - Musculoskeletal pain [None]
  - Pain in extremity [None]
  - Drug ineffective [None]

NARRATIVE: CASE EVENT DATE: 20190221
